FAERS Safety Report 6436333-7 (Version None)
Quarter: 2009Q4

REPORT INFORMATION
  Report Type: 
  Country: None (occurrence: None)
  Receive Date: 20091111
  Receipt Date: 20091110
  Transmission Date: 20100525
  Serious: Yes (Death)
  Sender: FDA-Public Use
  Company Number: BR-B.I. PHARMACEUTICALS,INC./RIDGEFIELD-2009-BR-01121BR

PATIENT
  Sex: Male

DRUGS (4)
  1. SPIRIVA [Suspect]
     Dosage: NR
     Route: 055
  2. IMMUNOSUPPRESSANTS [Concomitant]
     Dosage: NR
  3. CORTISONE [Concomitant]
     Dosage: NR
  4. ALL OTHER THERAPEUTIC PRODUCTS [Concomitant]
     Dosage: NR

REACTIONS (1)
  - BRONCHIECTASIS [None]
